FAERS Safety Report 6087838-2 (Version None)
Quarter: 2009Q1

REPORT INFORMATION
  Report Type: 
  Country: None (occurrence: None)
  Receive Date: 20090219
  Receipt Date: 20081208
  Transmission Date: 20090719
  Serious: No
  Sender: FDA-Public Use
  Company Number: WAES 0704USA01323

PATIENT
  Age: 68 Year
  Sex: Male

DRUGS (1)
  1. JANUVIA [Suspect]
     Indication: TYPE 1 DIABETES MELLITUS
     Dosage: 100 MG/DAILY/PO
     Route: 048
     Dates: start: 20070109

REACTIONS (6)
  - BLOOD POTASSIUM INCREASED [None]
  - DYSPNOEA [None]
  - NASAL CONGESTION [None]
  - OFF LABEL USE [None]
  - RASH [None]
  - RHINORRHOEA [None]
